FAERS Safety Report 16397837 (Version 3)
Quarter: 2022Q3

REPORT INFORMATION
  Report Type: Report from Study
  Country: CA (occurrence: CA)
  Receive Date: 20190606
  Receipt Date: 20220825
  Transmission Date: 20221027
  Serious: Yes (Other)
  Sender: FDA-Public Use
  Company Number: PHHY2013CA124087

PATIENT
  Age: 65 Year
  Sex: Female

DRUGS (5)
  1. TASIGNA [Suspect]
     Active Substance: NILOTINIB
     Indication: Chronic myeloid leukaemia
     Dosage: 300 MG, BID
     Route: 048
     Dates: start: 20130911
  2. TASIGNA [Suspect]
     Active Substance: NILOTINIB
     Dosage: UNK
     Route: 048
     Dates: start: 20130911
  3. OMEGA 3 [Suspect]
     Active Substance: CAPSAICIN
     Indication: Product used for unknown indication
     Route: 065
  4. VITAMIN B-COMPLEX [Suspect]
     Active Substance: DEXPANTHENOL\NIACINAMIDE\PYRIDOXINE HYDROCHLORIDE\RIBOFLAVIN 5^-PHOSPHATE SODIUM\THIAMINE HYDROCHLOR
     Indication: Product used for unknown indication
     Route: 065
  5. VITAMIN C [Concomitant]
     Active Substance: ASCORBIC ACID
     Indication: Product used for unknown indication
     Dosage: UNK
     Route: 065

REACTIONS (37)
  - Angina pectoris [Unknown]
  - Gastroenteritis norovirus [Unknown]
  - Osteoporosis [Unknown]
  - Dacryostenosis acquired [Recovered/Resolved]
  - Piloerection [Not Recovered/Not Resolved]
  - Hair texture abnormal [Unknown]
  - Limb discomfort [Recovering/Resolving]
  - Thyroid disorder [Unknown]
  - Infection [Unknown]
  - Drug intolerance [Unknown]
  - Eye discharge [Unknown]
  - Feeling abnormal [Unknown]
  - Nerve compression [Unknown]
  - Stress [Unknown]
  - Nerve injury [Unknown]
  - Blood cholesterol increased [Unknown]
  - Asthenia [Unknown]
  - Diarrhoea [Recovered/Resolved]
  - Illness [Unknown]
  - Middle insomnia [Unknown]
  - Constipation [Unknown]
  - Rash erythematous [Recovered/Resolved]
  - Pruritus [Unknown]
  - Skin disorder [Unknown]
  - Rash [Recovered/Resolved]
  - Blister [Unknown]
  - Nasopharyngitis [Unknown]
  - Alopecia [Not Recovered/Not Resolved]
  - Pain in extremity [Unknown]
  - Eye pruritus [Unknown]
  - Rash [Recovering/Resolving]
  - Blood pressure increased [Unknown]
  - Abdominal pain upper [Unknown]
  - Heart rate decreased [Unknown]
  - Arterial occlusive disease [Unknown]
  - Peripheral swelling [Unknown]
  - Dry skin [Unknown]

NARRATIVE: CASE EVENT DATE: 20161201
